FAERS Safety Report 6539335-5 (Version None)
Quarter: 2010Q1

REPORT INFORMATION
  Report Type: 
  Country: None (occurrence: None)
  Receive Date: 20100115
  Receipt Date: 20100105
  Transmission Date: 20100710
  Serious: Yes (Other)
  Sender: FDA-Public Use
  Company Number: PHEH2008US04921

PATIENT
  Sex: Male

DRUGS (7)
  1. ZOMETA [Suspect]
     Dosage: 4 MG, UNK
     Route: 042
     Dates: start: 20050601
  2. BENICAR [Concomitant]
     Dosage: 40/25 MG QD
  3. COLACE [Concomitant]
     Dosage: 100 MG, BID
  4. METAMUCIL [Concomitant]
     Dosage: UNK
  5. ZANTAC [Concomitant]
     Dosage: UNK
  6. PEPCID [Concomitant]
  7. ADVIL [Concomitant]

REACTIONS (17)
  - ANAEMIA [None]
  - ASTHENIA [None]
  - BONE DEBRIDEMENT [None]
  - BONE DISORDER [None]
  - DIABETES MELLITUS [None]
  - DYSLIPIDAEMIA [None]
  - ERUCTATION [None]
  - HUNGER [None]
  - METASTASIS [None]
  - MITRAL VALVE INCOMPETENCE [None]
  - MOUTH ULCERATION [None]
  - NAUSEA [None]
  - ORAL HERPES [None]
  - ORAL PAIN [None]
  - OSTEONECROSIS [None]
  - PAIN [None]
  - VENTRICULAR HYPERTROPHY [None]
